FAERS Safety Report 9612159 (Version 2)
Quarter: 2013Q4

REPORT INFORMATION
  Report Type: Spontaneous
  Country: US (occurrence: None)
  Receive Date: 20131008
  Receipt Date: 20131224
  Transmission Date: 20140711
  Serious: Yes (Death)
  Sender: FDA-Public Use
  Company Number: UTC-038564

PATIENT
  Age: 61 Year
  Sex: Male
  Weight: 77 kg

DRUGS (3)
  1. TYVASO [Suspect]
     Indication: PULMONARY ARTERIAL HYPERTENSION
     Dosage: 18-72 MCG (4 IN 1 D), INHALATION
     Route: 055
     Dates: start: 20110909
  2. LETAIRIS (AMBRISENTAN) (UNKNOWN) [Concomitant]
  3. SILDENAFIL CITRATE (UNKNOWN) [Concomitant]

REACTIONS (1)
  - Death [None]
